FAERS Safety Report 6326821-6 (Version None)
Quarter: 2009Q3

REPORT INFORMATION
  Report Type: 
  Country: None (occurrence: None)
  Receive Date: 20090825
  Receipt Date: 20090814
  Transmission Date: 20100115
  Serious: Yes (Hospitalization)
  Sender: FDA-Public Use
  Company Number: US-ROCHE-651319

PATIENT
  Age: 36 Year
  Sex: Female

DRUGS (6)
  1. MYCOPHENOLATE MOFETIL [Suspect]
     Indication: CHRONIC GRAFT VERSUS HOST DISEASE
     Route: 048
  2. TACROLIMUS [Suspect]
     Indication: CHRONIC GRAFT VERSUS HOST DISEASE
     Route: 042
  3. PREDNISONE [Suspect]
     Indication: CHRONIC GRAFT VERSUS HOST DISEASE
     Route: 065
  4. PREDNISONE [Suspect]
     Dosage: DOSE INCREASED
     Route: 065
  5. VORICONAZOLE [Suspect]
     Indication: DRUG USE FOR UNKNOWN INDICATION
     Dosage: ROUTE: PARENTERAL
     Route: 051
  6. VORICONAZOLE [Suspect]
     Dosage: ROUTE: ORAL
     Route: 051

REACTIONS (7)
  - FOOD POISONING [None]
  - FUNGAL INFECTION [None]
  - GRAFT VERSUS HOST DISEASE [None]
  - HEPATITIS [None]
  - HERPES ZOSTER [None]
  - PNEUMONIA BACTERIAL [None]
  - PNEUMONIA CYTOMEGALOVIRAL [None]
